FAERS Safety Report 10936232 (Version 2)
Quarter: 2015Q2

REPORT INFORMATION
  Report Type: Spontaneous
  Country: DE (occurrence: DE)
  Receive Date: 20150321
  Receipt Date: 20150401
  Transmission Date: 20150821
  Serious: Yes (Disabling, Other)
  Sender: FDA-Public Use
  Company Number: DE-RANBAXY-2015RR-94249

PATIENT
  Age: 72 Year
  Sex: Female
  Weight: 67 kg

DRUGS (4)
  1. PROPAFENON HEUMANN [Concomitant]
     Indication: HEART RATE IRREGULAR
     Dosage: 150 MG, 1-1 TAKEN DAILY
     Route: 065
  2. CEFUROX BASICS 250 MG TABLETTEN [Suspect]
     Active Substance: CEFUROXIME
     Indication: OTITIS MEDIA
  3. PHENPROGRAMMA 3 [Concomitant]
     Indication: ANTICOAGULANT THERAPY
     Dosage: 3 MG, DAILY
     Route: 065
  4. CEFUROX BASICS 250 MG TABLETTEN [Suspect]
     Active Substance: CEFUROXIME
     Indication: INFLUENZA
     Dosage: ONE TABLET IN THE EVENING ON 25-FEB-2015, NEXT DAY ONE TABLET IN THE MORNING AND ONE IN THE EVENING
     Route: 048
     Dates: start: 20150225, end: 20150226

REACTIONS (9)
  - Panic reaction [Recovered/Resolved]
  - Abdominal pain upper [Recovered/Resolved]
  - Sensation of blood flow [Recovered/Resolved]
  - Visual impairment [Recovered/Resolved]
  - Dizziness [Recovered/Resolved]
  - Chills [Recovered/Resolved]
  - Heart rate increased [Recovered/Resolved]
  - Tremor [Recovered/Resolved]
  - Asthenia [Recovered/Resolved]

NARRATIVE: CASE EVENT DATE: 20150226
